FAERS Safety Report 8599118-1 (Version None)
Quarter: 2012Q3

REPORT INFORMATION
  Report Type: 
  Country: None (occurrence: None)
  Receive Date: 20120816
  Receipt Date: 20120808
  Transmission Date: 20120928
  Serious: Yes (Other)
  Sender: FDA-Public Use
  Company Number: CHPA2012US015107

PATIENT
  Age: 92 Year
  Sex: Female

DRUGS (2)
  1. BENEFIBER W/ WHEAT DEXTRIN [Suspect]
     Indication: DIVERTICULITIS
     Dosage: 2 TSP, TID
     Route: 048
  2. VIBRAMYCIN [Concomitant]
     Dosage: UNK, UNK
     Dates: start: 20120704

REACTIONS (4)
  - DIARRHOEA [None]
  - HELICOBACTER INFECTION [None]
  - ABDOMINAL TENDERNESS [None]
  - OFF LABEL USE [None]
